FAERS Safety Report 8533958-X (Version None)
Quarter: 2012Q3

REPORT INFORMATION
  Report Type: 
  Country: None (occurrence: None)
  Receive Date: 20120724
  Receipt Date: 20120712
  Transmission Date: 20120928
  Serious: Yes (Death, Hospitalization)
  Sender: FDA-Public Use
  Company Number: DE-ROCHE-1090475

PATIENT
  Sex: Female

DRUGS (2)
  1. AVASTIN [Suspect]
     Indication: METASTATIC BRONCHIAL CARCINOMA
  2. TAMOXIFEN CITRATE [Concomitant]
     Indication: BREAST CANCER

REACTIONS (4)
  - RESPIRATORY FAILURE [None]
  - LARGE INTESTINE PERFORATION [None]
  - METASTASES TO LARGE INTESTINE [None]
  - PERITONITIS [None]
